FAERS Safety Report 9261663 (Version 1)
Quarter: 2013Q2

REPORT INFORMATION
  Report Type: Spontaneous
  Country: US (occurrence: US)
  Receive Date: 20130429
  Receipt Date: 20130429
  Transmission Date: 20140414
  Serious: Yes (Hospitalization, Other)
  Sender: FDA-Public Use
  Company Number: US-PFIZER INC-2013131780

PATIENT
  Sex: Female
  Weight: 52.15 kg

DRUGS (3)
  1. LYRICA [Suspect]
     Indication: FIBROMYALGIA
     Dosage: 200 MG, 3X/DAY
     Route: 048
  2. LYRICA [Suspect]
     Indication: NERVE INJURY
  3. LYRICA [Suspect]
     Indication: NEUROPATHY PERIPHERAL

REACTIONS (15)
  - Systemic lupus erythematosus [Unknown]
  - Meningitis [Unknown]
  - Meningitis meningococcal [Unknown]
  - Encephalitis [Unknown]
  - Apparent death [Unknown]
  - Coma [Unknown]
  - Renal disorder [Unknown]
  - Immunosuppression [Unknown]
  - Rheumatoid arthritis [Unknown]
  - Walking aid user [Unknown]
  - Tremor [Unknown]
  - Musculoskeletal stiffness [Unknown]
  - Feeling abnormal [Unknown]
  - Eating disorder [Unknown]
  - Insomnia [Unknown]
